FAERS Safety Report 4524840-3 (Version None)
Quarter: 2004Q4

REPORT INFORMATION
  Report Type: 
  Country: None (occurrence: None)
  Receive Date: 20041213
  Receipt Date: 20041206
  Transmission Date: 20050328
  Serious: Yes (Other)
  Sender: FDA-Public Use
  Company Number: US-BRISTOL-MYERS SQUIBB COMPANY-12790291

PATIENT

DRUGS (5)
  1. CISPLATIN [Suspect]
     Indication: CARCINOMA
     Route: 042
  2. ETOPOSIDE [Suspect]
     Indication: CARCINOMA
     Route: 042
  3. CYCLOPHOSPHAMIDE [Suspect]
     Indication: CARCINOMA
     Route: 042
  4. NEUPOGEN [Concomitant]
     Route: 058
  5. PIXY321 [Concomitant]
     Route: 058

REACTIONS (1)
  - IDIOPATHIC THROMBOCYTOPENIC PURPURA [None]
